FAERS Safety Report 10061561 (Version 1)
Quarter: 2014Q2

REPORT INFORMATION
  Report Type: Spontaneous
  Country: US (occurrence: None)
  Receive Date: 20140403
  Receipt Date: 20140403
  Transmission Date: 20141212
  Serious: Yes (Other)
  Sender: FDA-Public Use
  Company Number: AUR-APL-2014-04003

PATIENT
  Age: 56 Year
  Sex: Female
  Weight: 90.7 kg

DRUGS (11)
  1. ATENOLOL (ATENOLOL) [Suspect]
     Indication: BLOOD PRESSURE ABNORMAL
     Route: 048
     Dates: start: 20140227
  2. LISINOPRIL (LISINOPRIL) [Suspect]
     Indication: PRODUCT USED FOR UNKNOWN INDICATION
     Route: 048
     Dates: start: 2008
  3. NEXIUM (ESOMEPRAZOLE MAGNESIUM) [Suspect]
     Indication: GASTROOESOPHAGEAL REFLUX DISEASE
     Route: 048
     Dates: start: 2007, end: 20140227
  4. NEXIUM (ESOMEPRAZOLE MAGNESIUM) [Suspect]
     Indication: HIATUS HERNIA
     Route: 048
     Dates: start: 2007, end: 20140227
  5. NEXIUM (ESOMEPRAZOLE MAGNESIUM) [Suspect]
     Indication: STRESS ULCER
     Route: 048
     Dates: start: 2007, end: 20140227
  6. TRAMADOL (TRAMADOL) [Concomitant]
  7. CYCLOBENZAPRINE (CYCLOBENZAPRINE) [Concomitant]
  8. ALLOPURINOL (ALLOPURINOL) [Concomitant]
  9. AMITRIPTYLINE (AMITRIPTYLINE) [Concomitant]
  10. MELOXICAM (MELOXICAM) [Concomitant]
  11. HYDROCHLOROTHIAZIDE (HYDROCHLOROTHIAZIDE) [Concomitant]

REACTIONS (10)
  - Oesophageal spasm [None]
  - Choking [None]
  - Gastrooesophageal reflux disease [None]
  - Nausea [None]
  - Abdominal pain [None]
  - Drug dose omission [None]
  - Intervertebral disc degeneration [None]
  - Diverticulum [None]
  - Osteoarthritis [None]
  - Spinal osteoarthritis [None]
